FAERS Safety Report 4359132-9 (Version None)
Quarter: 2004Q2

REPORT INFORMATION
  Report Type: 
  Country: None (occurrence: None)
  Receive Date: 20040512
  Receipt Date: 20040530
  Transmission Date: 20050107
  Serious: Yes (Life-Threatening)
  Sender: FDA-Public Use
  Company Number: 2004SE02504

PATIENT
  Age: 27 Year
  Sex: Female

DRUGS (12)
  1. PROPOFOLUM [Suspect]
     Indication: SEDATION
     Dosage: 500 MG / HR IV
     Route: 042
     Dates: start: 20040403, end: 20040406
  2. MIDAZOLAM HCL [Concomitant]
  3. MORPHINE HYDROCHLORIDE [Concomitant]
  4. DOPAMINE HYDROCHLORIDE [Concomitant]
  5. PAVULON [Concomitant]
  6. PARACETAMOL SUPPOSITORY [Concomitant]
  7. POTASSIUM CHLORIDE [Concomitant]
  8. NORADRENALINE [Concomitant]
  9. PREPULSID [Concomitant]
  10. CEFOTAXIM [Concomitant]
  11. HYDROCORTISON [Concomitant]
  12. KETENSION [Concomitant]

REACTIONS (5)
  - ALANINE AMINOTRANSFERASE INCREASED [None]
  - ASPARTATE AMINOTRANSFERASE INCREASED [None]
  - BLOOD SODIUM INCREASED [None]
  - HAEMODYNAMIC INSTABILITY [None]
  - RHABDOMYOLYSIS [None]
